FAERS Safety Report 9444599 (Version 1)
Quarter: 2013Q3

REPORT INFORMATION
  Report Type: Spontaneous
  Country: US (occurrence: US)
  Receive Date: 20130807
  Receipt Date: 20130807
  Transmission Date: 20140515
  Serious: No
  Sender: FDA-Public Use
  Company Number: US-PFIZER INC-2013226693

PATIENT
  Sex: Male

DRUGS (1)
  1. ADVIL [Suspect]
     Indication: NEURITIS
     Dosage: 600 MG (THREE CAPSULES OF 200 MG EACH), EVERY SIX HOURS
     Route: 048
     Dates: end: 2013

REACTIONS (6)
  - Overdose [Unknown]
  - Abdominal discomfort [Unknown]
  - Dyspepsia [Unknown]
  - Flatulence [Unknown]
  - Eructation [Unknown]
  - Abdominal pain upper [Unknown]
